FAERS Safety Report 16822525 (Version 1)
Quarter: 2019Q3

REPORT INFORMATION
  Report Type: Spontaneous
  Country: CO (occurrence: CO)
  Receive Date: 20190918
  Receipt Date: 20190918
  Transmission Date: 20191005
  Serious: Yes (Other)
  Sender: FDA-Public Use
  Company Number: CO-PFIZER INC-2019398813

PATIENT

DRUGS (1)
  1. GENOTROPIN [Suspect]
     Active Substance: SOMATROPIN
     Indication: BODY HEIGHT BELOW NORMAL
     Dosage: 0.8 MG, UNK
     Route: 058
     Dates: start: 2015

REACTIONS (14)
  - Rash [Unknown]
  - Neuropathy peripheral [Unknown]
  - Faeces soft [Unknown]
  - Incorrect dose administered [Unknown]
  - Musculoskeletal stiffness [Unknown]
  - Device issue [Unknown]
  - Neck pain [Unknown]
  - Transaminases increased [Unknown]
  - Arthralgia [Unknown]
  - Alopecia [Unknown]
  - Maculopathy [Unknown]
  - Condition aggravated [Unknown]
  - Rash erythematous [Unknown]
  - Expired device used [Unknown]

NARRATIVE: CASE EVENT DATE: 2019
